FAERS Safety Report 6716532-7 (Version None)
Quarter: 2010Q2

REPORT INFORMATION
  Report Type: 
  Country: None (occurrence: None)
  Receive Date: 20100507
  Receipt Date: 20100430
  Transmission Date: 20101027
  Serious: Yes (Hospitalization)
  Sender: FDA-Public Use
  Company Number: US-AMGEN-KDC409841

PATIENT
  Age: 46 Year
  Sex: Male

DRUGS (4)
  1. PANITUMUMAB [Suspect]
     Indication: OESOPHAGEAL CARCINOMA
  2. CISPLATIN [Suspect]
  3. DOCETAXEL [Suspect]
  4. RADIATION THERAPY [Suspect]
     Dates: end: 20100415

REACTIONS (10)
  - ALANINE AMINOTRANSFERASE ABNORMAL [None]
  - ASPARTATE AMINOTRANSFERASE ABNORMAL [None]
  - DEHYDRATION [None]
  - DYSPHAGIA [None]
  - EMBOLISM [None]
  - HAEMOGLOBIN ABNORMAL [None]
  - OESOPHAGEAL PERFORATION [None]
  - OESOPHAGITIS [None]
  - PNEUMONITIS [None]
  - THROMBOSIS [None]
